FAERS Safety Report 5045145-0 (Version None)
Quarter: 2006Q3

REPORT INFORMATION
  Report Type: 
  Country: None (occurrence: None)
  Receive Date: 20060705
  Receipt Date: 20060621
  Transmission Date: 20061208
  Serious: Yes (Hospitalization)
  Sender: FDA-Public Use
  Company Number: M-06-0512

PATIENT
  Age: 69 Year
  Sex: Male

DRUGS (11)
  1. PACERONE,                   UNKNOWN STRENGTH [Suspect]
     Indication: ATRIAL FIBRILLATION
     Dosage: PO
     Route: 048
     Dates: start: 20041201, end: 20050601
  2. ALTACE [Concomitant]
  3. ZETIA [Concomitant]
  4. DOXAZOSIN [Concomitant]
  5. FUROSEMIDE [Concomitant]
  6. NIASPAN [Concomitant]
  7. LIPITOR [Concomitant]
  8. K-DUR 10 [Concomitant]
  9. TOPROL-XL [Concomitant]
  10. COUMADIN [Concomitant]
  11. METOLAZONE [Concomitant]

REACTIONS (3)
  - CARDIAC FAILURE CONGESTIVE [None]
  - CONDITION AGGRAVATED [None]
  - PULMONARY FIBROSIS [None]
